FAERS Safety Report 14778704 (Version 3)
Quarter: 2018Q2

REPORT INFORMATION
  Report Type: Spontaneous
  Country: BR (occurrence: BR)
  Receive Date: 20180419
  Receipt Date: 20180517
  Transmission Date: 20180711
  Serious: Yes (Other)
  Sender: FDA-Public Use
  Company Number: BR-AMGEN-BRASP2015052330

PATIENT
  Age: 32 Year
  Sex: Female
  Weight: 55 kg

DRUGS (18)
  1. PANTOPRAZOLE [Concomitant]
     Active Substance: PANTOPRAZOLE
     Indication: GASTROOESOPHAGEAL REFLUX DISEASE
     Dosage: 40 MG, DAILY
     Dates: start: 201409
  2. METHOTREXATE. [Concomitant]
     Active Substance: METHOTREXATE
     Dosage: 2, 5 MG 3TIMES DAILY 2 DAYS A WEEK
     Dates: start: 201407
  3. PRIMERA [Concomitant]
     Active Substance: UNSPECIFIED INGREDIENT
     Indication: CONTRACEPTION
     Dosage: UNK
  4. IMECAP REJUVENECED [Concomitant]
     Indication: SKIN DISORDER
     Dosage: UNK
     Dates: start: 201505
  5. VITAMIN D [Concomitant]
     Active Substance: CHOLECALCIFEROL
     Dosage: UNK
  6. OMEPRAZOLE. [Concomitant]
     Active Substance: OMEPRAZOLE
     Indication: GASTROOESOPHAGEAL REFLUX DISEASE
     Dosage: 40 MG, 1X/DAY (1 TABLET DAILY)
  7. ENBREL [Suspect]
     Active Substance: ETANERCEPT
     Dosage: UNK
     Route: 065
  8. INDOCID [Concomitant]
     Active Substance: INDOMETHACIN
     Dosage: 3 TABLETS DAILY (25 MG THREE TIMES DAILY)
     Dates: start: 201502
  9. ENBREL [Suspect]
     Active Substance: ETANERCEPT
     Indication: RHEUMATOID ARTHRITIS
     Dosage: 50 MG, QWK
     Route: 058
  10. ENBREL [Suspect]
     Active Substance: ETANERCEPT
     Dosage: UNK
     Route: 065
     Dates: start: 201505
  11. ENBREL [Suspect]
     Active Substance: ETANERCEPT
     Indication: ANKYLOSING SPONDYLITIS
     Dosage: 50 MG, QWK
     Route: 058
     Dates: start: 20150519
  12. TECNOMET [Concomitant]
     Active Substance: METHOTREXATE
     Dosage: 6 TABLETS OF 2.5MG (15 MG), WEEKLY
  13. ENBREL [Suspect]
     Active Substance: ETANERCEPT
     Dosage: 50 MG, QWK
     Route: 058
  14. OMEGA 3 [Concomitant]
     Active Substance: OMEGA-3 FATTY ACIDS
     Dosage: 1 DF, DAILY
  15. OMEGA 3 [Concomitant]
     Active Substance: OMEGA-3 FATTY ACIDS
     Dosage: 1 CAPSULE, DAILY
  16. INDOMETACIN [Concomitant]
     Active Substance: INDOMETHACIN
     Dosage: UNK
  17. INDOMETACIN [Concomitant]
     Active Substance: INDOMETHACIN
     Dosage: UNK
  18. FOLIC ACID. [Concomitant]
     Active Substance: FOLIC ACID
     Dosage: 10 MG (2 TABLETS OF 5MG), WEEKLY

REACTIONS (21)
  - Cervical dysplasia [Not Recovered/Not Resolved]
  - Injection site discolouration [Recovered/Resolved]
  - Viral infection [Unknown]
  - Condition aggravated [Recovered/Resolved]
  - Vascular injury [Unknown]
  - Anal haemorrhage [Not Recovered/Not Resolved]
  - Injection site swelling [Recovered/Resolved]
  - Joint swelling [Recovered/Resolved]
  - Disease recurrence [Not Recovered/Not Resolved]
  - Injection site pain [Recovered/Resolved]
  - Squamous cell carcinoma of the vagina [Not Recovered/Not Resolved]
  - Injection site mass [Recovered/Resolved]
  - Injection site haemorrhage [Recovered/Resolved]
  - Injection site erythema [Recovered/Resolved]
  - Sinusitis [Recovered/Resolved]
  - Human papilloma virus test positive [Recovered/Resolved]
  - Wrong technique in product usage process [Recovered/Resolved]
  - Molluscum contagiosum [Recovered/Resolved]
  - Erythema [Recovered/Resolved]
  - Injection site pruritus [Recovered/Resolved]
  - Anal fissure [Not Recovered/Not Resolved]

NARRATIVE: CASE EVENT DATE: 2015
